FAERS Safety Report 24194006 (Version 1)
Quarter: 2024Q3

REPORT INFORMATION
  Report Type: Spontaneous
  Country: US (occurrence: US)
  Receive Date: 20240809
  Receipt Date: 20240809
  Transmission Date: 20241016
  Serious: Yes (Other)
  Sender: STRIDES
  Company Number: US-STRIDES ARCOLAB LIMITED-2023SP016294

PATIENT
  Age: 22 Year
  Sex: Female

DRUGS (2)
  1. PROMETHAZINE HYDROCHLORIDE [Suspect]
     Active Substance: PROMETHAZINE HYDROCHLORIDE
     Indication: Product used for unknown indication
     Dosage: UNK
     Route: 065
  2. BREXANOLONE [Suspect]
     Active Substance: BREXANOLONE
     Indication: Perinatal depression
     Dosage: 60 MICROGRAM/KILOGRAM PER HOUR (INTRAVENOUS INFUSION)
     Route: 042

REACTIONS (1)
  - Sedation [Recovered/Resolved]
